FAERS Safety Report 9307269 (Version 1)
Quarter: 2013Q2

REPORT INFORMATION
  Report Type: Spontaneous
  Country: US (occurrence: US)
  Receive Date: 20130524
  Receipt Date: 20130524
  Transmission Date: 20140414
  Serious: Yes (Other)
  Sender: FDA-Public Use
  Company Number: US-SHIRE-ALL1-2013-03279

PATIENT
  Sex: Female

DRUGS (3)
  1. ADDERALL XR [Suspect]
     Indication: ATTENTION DEFICIT/HYPERACTIVITY DISORDER
     Dosage: 30 MG, UNKNOWN
     Route: 048
  2. MAS (MIXED AMPHETAMINE SALTS) [Suspect]
     Indication: ATTENTION DEFICIT/HYPERACTIVITY DISORDER
     Dosage: 30 MG, UNKNOWN
     Route: 048
     Dates: end: 2013
  3. MAS (MIXED AMPHETAMINE SALTS) [Suspect]
     Dosage: 30 MG, UNKNOWN
     Route: 048
     Dates: start: 2013

REACTIONS (4)
  - Road traffic accident [Recovered/Resolved]
  - Brain injury [Not Recovered/Not Resolved]
  - Limb injury [Unknown]
  - Anger [Unknown]
